FAERS Safety Report 7731977-4 (Version None)
Quarter: 2011Q3

REPORT INFORMATION
  Report Type: 
  Country: None (occurrence: None)
  Receive Date: 20110906
  Receipt Date: 20110823
  Transmission Date: 20111222
  Serious: Yes (Hospitalization)
  Sender: FDA-Public Use
  Company Number: AU-MYLANLABS-2011S1017769

PATIENT
  Age: 58 Year
  Sex: Female

DRUGS (6)
  1. DEXAMETHASONE [Suspect]
     Indication: PREMEDICATION
     Route: 065
  2. DEXAMETHASONE [Suspect]
     Dosage: 4MG FOR 2 DAYS
     Route: 065
  3. CARBOPLATIN [Suspect]
     Indication: ENDOMETRIAL CANCER
     Dosage: AUC 5
     Route: 042
  4. PACLITAXEL [Suspect]
     Indication: ENDOMETRIAL CANCER
     Dosage: 175 MG/M2
     Route: 042
  5. DEXAMETHASONE [Suspect]
     Dosage: 4MG FOR 2 DAYS
     Route: 065
  6. DEXAMETHASONE [Suspect]
     Indication: ANTIEMETIC SUPPORTIVE CARE
     Route: 065

REACTIONS (1)
  - PYOMYOSITIS [None]
